FAERS Safety Report 26084513 (Version 1)
Quarter: 2025Q4

REPORT INFORMATION
  Report Type: Spontaneous
  Country: EU (occurrence: EU)
  Receive Date: 20251124
  Receipt Date: 20251124
  Transmission Date: 20260118
  Serious: Yes (Hospitalization, Other)
  Sender: BRECKENRIDGE PHARMACEUTICAL, INC.
  Company Number: EU-Breckenridge Pharmaceutical, Inc.-2189247

PATIENT
  Sex: Male

DRUGS (20)
  1. OMEPRAZOLE [Suspect]
     Active Substance: OMEPRAZOLE
     Indication: Product used for unknown indication
  2. BOCOCIZUMAB [Suspect]
     Active Substance: BOCOCIZUMAB
  3. FOLIC ACID [Concomitant]
     Active Substance: FOLIC ACID
  4. ATORVASTATIN [Concomitant]
     Active Substance: ATORVASTATIN
  5. SERTRALINE HYDROCHLORIDE [Concomitant]
     Active Substance: SERTRALINE HYDROCHLORIDE
  6. SACUBITRIL; VALSARTAN [Concomitant]
  7. SACUBITRIL [Concomitant]
     Active Substance: SACUBITRIL
  8. ACETAMINOPHEN [Concomitant]
     Active Substance: ACETAMINOPHEN
  9. PARACETAMOL; CODEINE PHOSPHATE [Concomitant]
  10. CODEINE PHOSPHATE [Concomitant]
     Active Substance: CODEINE PHOSPHATE
  11. ASPIRIN [Concomitant]
     Active Substance: ASPIRIN
  12. METHOTREXATE [Concomitant]
     Active Substance: METHOTREXATE
  13. NITROGLYCERIN [Concomitant]
     Active Substance: NITROGLYCERIN
  14. CARVEDILOL [Suspect]
     Active Substance: CARVEDILOL
  15. FUROSEMIDE [Suspect]
     Active Substance: FUROSEMIDE
  16. RAMIPRIL [Suspect]
     Active Substance: RAMIPRIL
  17. QUETIAPINE FUMARATE [Suspect]
     Active Substance: QUETIAPINE FUMARATE
  18. ISOSORBIDE MONONITRATE [Suspect]
     Active Substance: ISOSORBIDE MONONITRATE
  19. IVABRADINE HYDROCHLORIDE [Suspect]
     Active Substance: IVABRADINE HYDROCHLORIDE
  20. CLOTRIMAZOLE AND BETAMETHASONE DIPROPIONATE [Concomitant]
     Active Substance: BETAMETHASONE\BETAMETHASONE DIPROPIONATE\CLOTRIMAZOLE

REACTIONS (13)
  - Pulmonary oedema [Unknown]
  - Off label use [Unknown]
  - Drug interaction [Recovered/Resolved]
  - Anaemia [Unknown]
  - Hypotension [Recovered/Resolved]
  - Angina pectoris [Unknown]
  - Ventricular dysfunction [Unknown]
  - Presyncope [Unknown]
  - Fluid retention [Unknown]
  - Psoriasis [Unknown]
  - Cardiac failure [Unknown]
  - Oedema peripheral [Not Recovered/Not Resolved]
  - Contusion [Recovered/Resolved]
